FAERS Safety Report 4720511-9 (Version None)
Quarter: 2005Q3

REPORT INFORMATION
  Report Type: 
  Country: None (occurrence: None)
  Receive Date: 20050721
  Receipt Date: 20050328
  Transmission Date: 20060218
  Serious: No
  Sender: FDA-Public Use
  Company Number: US-BRISTOL-MYERS SQUIBB COMPANY-12912796

PATIENT
  Age: 60 Year
  Sex: Female

DRUGS (5)
  1. GLUCOVANCE [Suspect]
     Route: 048
  2. BEXTRA [Concomitant]
  3. ACTOS [Concomitant]
  4. COZAAR [Concomitant]
  5. LASIX [Concomitant]

REACTIONS (1)
  - ALOPECIA [None]
